FAERS Safety Report 6806503-4 (Version None)
Quarter: 2010Q2

REPORT INFORMATION
  Report Type: 
  Country: None (occurrence: None)
  Receive Date: 20100629
  Receipt Date: 20080312
  Transmission Date: 20101027
  Serious: No
  Sender: FDA-Public Use
  Company Number: US-PFIZER INC-2008026560

PATIENT
  Sex: Male
  Weight: 86.18 kg

DRUGS (11)
  1. TIKOSYN [Suspect]
     Indication: HEART RATE IRREGULAR
     Route: 048
     Dates: start: 20070201
  2. TIKOSYN [Suspect]
     Indication: CARDIAC PACEMAKER INSERTION
  3. HYDROCHLOROTHIAZIDE [Suspect]
  4. TRIAMTERENE [Suspect]
  5. NORVASC [Concomitant]
     Indication: HYPERTENSION
     Dates: start: 20080101
  6. COZAAR [Concomitant]
  7. ACTOS [Concomitant]
     Indication: BLOOD GLUCOSE INCREASED
  8. HYDRALAZINE HCL [Concomitant]
     Indication: HYPERTENSION
  9. WARFARIN SODIUM [Concomitant]
  10. AZULFIDINE [Concomitant]
     Indication: ARTHRITIS
  11. LASIX [Concomitant]

REACTIONS (1)
  - LABELLED DRUG-DRUG INTERACTION MEDICATION ERROR [None]
